FAERS Safety Report 8575139-X (Version None)
Quarter: 2012Q3

REPORT INFORMATION
  Report Type: 
  Country: None (occurrence: None)
  Receive Date: 20120807
  Receipt Date: 20120802
  Transmission Date: 20120928
  Serious: Yes (Death, Hospitalization, Other)
  Sender: FDA-Public Use
  Company Number: FR-PFIZER INC-2012187656

PATIENT
  Age: 64 Year
  Sex: Female

DRUGS (12)
  1. COLIMYCIN [Concomitant]
  2. IDARUBICIN HYDROCHLORIDE [Suspect]
     Indication: ACUTE MYELOID LEUKAEMIA
     Dosage: UNK, DAY 1 TO DAY 3
     Route: 041
     Dates: start: 20120410, end: 20120413
  3. ZOFRAN [Concomitant]
     Indication: ACUTE MYELOID LEUKAEMIA
  4. DAPSONE [Concomitant]
     Dosage: UNK
     Dates: start: 20120411, end: 20120418
  5. FRESH FROZEN PLASMA [Concomitant]
     Dosage: UNK
     Dates: start: 20100901
  6. ERYTHROPOIETIN [Concomitant]
     Dosage: 20 MG, UNK
     Dates: start: 20100901
  7. HEPARIN [Concomitant]
  8. RAMIPRIL [Concomitant]
     Indication: HYPERTENSION
  9. OMEPRAZOLE [Concomitant]
  10. POSACONAZOLE [Concomitant]
  11. CYTARABINE [Suspect]
     Indication: ACUTE MYELOID LEUKAEMIA
     Dosage: 4 G DAILY, CYCLIC (FROM DAY 1 TO DAY 5)
     Route: 041
     Dates: start: 20120410, end: 20120414
  12. VALACYCLOVIR HYDROCHLORIDE [Concomitant]

REACTIONS (2)
  - HAEMOLYTIC URAEMIC SYNDROME [None]
  - CEREBELLAR ATAXIA [None]
